FAERS Safety Report 8916118 (Version 2)
Quarter: 2012Q4

REPORT INFORMATION
  Report Type: 
  Country: JP (occurrence: JP)
  Receive Date: 20121120
  Receipt Date: 20121217
  Transmission Date: 20130627
  Serious: Yes (Death, Hospitalization)
  Sender: FDA-Public Use
  Company Number: JP-ELI_LILLY_AND_COMPANY-JP201210005265

PATIENT
  Age: 75 Year
  Sex: Female
  Weight: 37.8 kg

DRUGS (11)
  1. GEMZAR [Suspect]
     Indication: PANCREATIC CARCINOMA STAGE IV
     Dosage: 1200 mg, other
     Route: 042
     Dates: start: 20120731, end: 20120814
  2. GEMZAR [Suspect]
     Dosage: 1200 mg, UNK
     Route: 042
     Dates: start: 20120828, end: 20120904
  3. GEMZAR [Suspect]
     Dosage: 1200 mg, UNK
     Route: 042
     Dates: start: 20121002, end: 20121016
  4. TS 1 [Concomitant]
     Indication: PANCREATIC CARCINOMA STAGE IV
     Dosage: 80 mg, qd
     Route: 048
     Dates: start: 20120828, end: 20120910
  5. BAZEDOXIFENE ACETATE [Concomitant]
     Dosage: 20 mg, UNK
     Route: 048
     Dates: end: 20121030
  6. FOIPAN [Concomitant]
     Dosage: 300 mg, UNK
     Route: 048
     Dates: end: 20121030
  7. OPALMON [Concomitant]
     Dosage: UNK
     Route: 048
     Dates: end: 20121030
  8. MAGMITT [Concomitant]
     Dosage: 990 mg, UNK
     Route: 048
     Dates: end: 20121030
  9. OXYCONTIN [Concomitant]
     Indication: CANCER PAIN
     Dosage: 20 mg, UNK
     Route: 048
     Dates: start: 20120831, end: 20121030
  10. ONEALFA [Concomitant]
     Dosage: 0.5 ug, UNK
     Route: 048
     Dates: end: 20121030
  11. TOUGHMAC E [Concomitant]
     Dosage: 1 g, UNK
     Route: 048
     Dates: end: 20121030

REACTIONS (4)
  - Malignant neoplasm progression [Fatal]
  - Interstitial lung disease [Not Recovered/Not Resolved]
  - Decreased appetite [Not Recovered/Not Resolved]
  - Stomatitis [Recovering/Resolving]
